FAERS Safety Report 20767957 (Version 4)
Quarter: 2022Q2

REPORT INFORMATION
  Report Type: Spontaneous
  Country: US (occurrence: US)
  Receive Date: 20220429
  Receipt Date: 20220515
  Transmission Date: 20220720
  Serious: No
  Sender: FDA-Public Use
  Company Number: US-AMGEN-USASP2022071125

PATIENT
  Age: 76 Year
  Sex: Male
  Weight: 90.72 kg

DRUGS (1)
  1. NEULASTA [Suspect]
     Active Substance: PEGFILGRASTIM
     Indication: Product used for unknown indication
     Dosage: UNK
     Route: 065

REACTIONS (2)
  - Chills [Unknown]
  - Device malfunction [Unknown]

NARRATIVE: CASE EVENT DATE: 20220421
